FAERS Safety Report 4855540-8 (Version None)
Quarter: 2005Q4

REPORT INFORMATION
  Report Type: 
  Country: None (occurrence: None)
  Receive Date: 20051216
  Receipt Date: 20051205
  Transmission Date: 20060501
  Serious: Yes (Other)
  Sender: FDA-Public Use
  Company Number: US-AMGEN-US160465

PATIENT
  Age: 28 Year
  Sex: Male
  Weight: 68.1 kg

DRUGS (9)
  1. PROCRIT [Suspect]
     Indication: HIV INFECTION
     Dates: start: 20031201, end: 20051204
  2. VIDEX [Concomitant]
  3. KALETRA [Concomitant]
  4. ZITHROMAX [Concomitant]
  5. ETHAMBUTOL [Concomitant]
  6. FERROUS SULFATE TAB [Concomitant]
  7. FOLIC ACID [Concomitant]
  8. ATOVAQUONE [Concomitant]
  9. TENOFOVIR DISOPROXIL FUMARAT [Concomitant]

REACTIONS (2)
  - APLASIA PURE RED CELL [None]
  - BONE MARROW TRANSPLANT [None]
